FAERS Safety Report 12971018 (Version 2)
Quarter: 2016Q4

REPORT INFORMATION
  Report Type: Spontaneous
  Country: US (occurrence: US)
  Receive Date: 20161123
  Receipt Date: 20161128
  Transmission Date: 20170207
  Serious: No
  Sender: FDA-Public Use
  Company Number: US-JAZZ-2016-US-018822

PATIENT
  Age: 34 Year
  Sex: Male

DRUGS (18)
  1. TYLENOL COLD MULTI-SYMPTOM NIGHTTIM. [Concomitant]
  2. PRAZOSIN [Concomitant]
     Active Substance: PRAZOSIN
  3. XYREM [Suspect]
     Active Substance: SODIUM OXYBATE
     Indication: NARCOLEPSY
     Dosage: 2.25 G, BID
     Route: 048
     Dates: start: 201512
  4. GREEN COFFEE BEAN [Concomitant]
  5. LORAZEPAM. [Concomitant]
     Active Substance: LORAZEPAM
  6. RANITIDINE. [Concomitant]
     Active Substance: RANITIDINE
  7. NYQUIL D [Concomitant]
  8. BENZTROPINE MESILATE [Concomitant]
     Active Substance: BENZTROPINE MESYLATE
  9. CYMBALTA [Concomitant]
     Active Substance: DULOXETINE HYDROCHLORIDE
  10. MODAFINIL. [Concomitant]
     Active Substance: MODAFINIL
  11. PRAVASTATIN SODIUM. [Concomitant]
     Active Substance: PRAVASTATIN SODIUM
  12. BUPROPION HCL [Concomitant]
     Active Substance: BUPROPION HYDROCHLORIDE
  13. GABAPENTIN. [Concomitant]
     Active Substance: GABAPENTIN
  14. LAMOTRIGINE. [Concomitant]
     Active Substance: LAMOTRIGINE
  15. FLONASE                            /00908302/ [Concomitant]
     Active Substance: MOMETASONE FUROATE
  16. FLONASE                            /00908302/ [Concomitant]
     Active Substance: MOMETASONE FUROATE
  17. MULTIVITAMINS                      /00116001/ [Concomitant]
  18. RISPERIDONE. [Concomitant]
     Active Substance: RISPERIDONE

REACTIONS (5)
  - Corneal abrasion [Recovered/Resolved]
  - Unevaluable event [Unknown]
  - Foreign body in eye [Recovered/Resolved]
  - Nasopharyngitis [Unknown]
  - Somnolence [Unknown]

NARRATIVE: CASE EVENT DATE: 20160830
